FAERS Safety Report 16592651 (Version 2)
Quarter: 2020Q1

REPORT INFORMATION
  Report Type: Report from Study
  Country: JP (occurrence: JP)
  Receive Date: 20190718
  Receipt Date: 20200205
  Transmission Date: 20200409
  Serious: Yes (Hospitalization)
  Sender: FDA-Public Use
  Company Number: JP-ASTRAZENECA-2019SF01415

PATIENT
  Age: 84 Year
  Sex: Female
  Weight: 40 kg

DRUGS (1)
  1. LYNPARZA [Suspect]
     Active Substance: OLAPARIB
     Indication: OVARIAN CANCER
     Route: 048
     Dates: start: 20180710

REACTIONS (3)
  - Postpolypectomy syndrome [Recovered/Resolved]
  - Anaemia [Recovering/Resolving]
  - Colon cancer [Recovered/Resolved]

NARRATIVE: CASE EVENT DATE: 20180801
